FAERS Safety Report 12296937 (Version 2)
Quarter: 2016Q2

REPORT INFORMATION
  Report Type: Other
  Country: GB (occurrence: GB)
  Receive Date: 20160422
  Receipt Date: 20160603
  Transmission Date: 20160815
  Serious: Yes (Hospitalization)
  Sender: FDA-Public Use
  Company Number: GB-MYLANLABS-2016M1012415

PATIENT

DRUGS (5)
  1. TESTOSTERONE. [Suspect]
     Active Substance: TESTOSTERONE
     Dosage: UNK
     Route: 030
  2. SERTRALINE [Concomitant]
     Active Substance: SERTRALINE HYDROCHLORIDE
     Indication: DEPRESSION
     Dosage: UNK
     Dates: start: 201512
  3. FLUOXETINE [Suspect]
     Active Substance: FLUOXETINE HYDROCHLORIDE
     Indication: DEPRESSION
     Dosage: 20 MG, QD (PRESCRIBED 15 CAPSULES OVERDOSED WITH 12 ON THE 18/02)
     Route: 048
     Dates: start: 20160218, end: 20160223
  4. PARACETAMOL [Suspect]
     Active Substance: ACETAMINOPHEN
     Dosage: 1 G, UNK
     Dates: start: 20160218
  5. NANDROLONE [Suspect]
     Active Substance: NANDROLONE
     Dosage: UNK
     Route: 030

REACTIONS (8)
  - Cholestasis [Unknown]
  - Jaundice [Recovering/Resolving]
  - Overdose [Not Recovered/Not Resolved]
  - Eye colour change [Unknown]
  - Yellow skin [Unknown]
  - Pruritus [Unknown]
  - Liver function test abnormal [Recovering/Resolving]
  - Chromaturia [Unknown]

NARRATIVE: CASE EVENT DATE: 20160218
